FAERS Safety Report 9220915 (Version 2)
Quarter: 2013Q2

REPORT INFORMATION
  Report Type: Spontaneous
  Country: CA (occurrence: CA)
  Receive Date: 20130409
  Receipt Date: 20130621
  Transmission Date: 20140414
  Serious: Yes (Hospitalization)
  Sender: FDA-Public Use
  Company Number: CA-ELI_LILLY_AND_COMPANY-CA201304000741

PATIENT
  Age: 82 Year
  Sex: Female

DRUGS (17)
  1. FORTEO [Suspect]
     Indication: OSTEOPOROSIS
     Dosage: 20 MG, QD
     Route: 058
     Dates: start: 20120604
  2. FERROUS SULPHATE [Concomitant]
     Dosage: UNK, UNKNOWN
     Route: 065
  3. FUROSEMIDE [Concomitant]
     Dosage: UNK, UNKNOWN
     Route: 065
  4. PAROXETINE TEVA [Concomitant]
     Dosage: UNK, UNKNOWN
     Route: 065
  5. SYNTHROID [Concomitant]
     Dosage: UNK, UNKNOWN
     Route: 065
  6. AMLODIPINE [Concomitant]
     Dosage: UNK, UNKNOWN
     Route: 065
  7. BIOCAL-D [Concomitant]
     Dosage: UNK, UNKNOWN
     Route: 065
  8. PANTOPRAZOL [Concomitant]
     Dosage: UNK, UNKNOWN
     Route: 065
  9. ATENOLOL [Concomitant]
     Dosage: UNK, UNKNOWN
     Route: 065
  10. CRESTOR [Concomitant]
     Dosage: UNK, UNKNOWN
     Route: 065
  11. ACETAMINOPHEN [Concomitant]
     Dosage: UNK, UNKNOWN
     Route: 065
  12. COUMADIN [Concomitant]
     Dosage: UNK, UNKNOWN
     Route: 065
  13. APO-HYDROXYZINE [Concomitant]
     Dosage: UNK, UNKNOWN
     Route: 065
  14. SERAX [Concomitant]
     Dosage: UNK, UNKNOWN
     Route: 065
  15. ADVAIR [Concomitant]
     Dosage: UNK, UNKNOWN
     Route: 065
  16. LYRICA [Concomitant]
     Dosage: UNK, UNKNOWN
     Route: 065
  17. QUETIAPINE [Concomitant]
     Indication: OSTEOPOROSIS
     Dosage: UNK, UNKNOWN
     Route: 065

REACTIONS (2)
  - Drug hypersensitivity [Recovered/Resolved]
  - Alopecia [Unknown]
